FAERS Safety Report 12492058 (Version 1)
Quarter: 2016Q2

REPORT INFORMATION
  Report Type: Spontaneous
  Country: US (occurrence: US)
  Receive Date: 20160623
  Receipt Date: 20160623
  Transmission Date: 20160815
  Serious: Yes (Other)
  Sender: FDA-Public Use
  Company Number: US-PROCTER_AND_GAMBLE-GS16078452

PATIENT

DRUGS (1)
  1. PEPTO-BISMOL NOS [Suspect]
     Active Substance: BISMUTH SUBSALICYLATE OR CALCIUM CARBONATE
     Indication: ABDOMINAL PAIN UPPER
     Dosage: UNKNOWN AMOUNT FOR THE FIRST TIME, 1 ONLY
     Route: 048
     Dates: start: 201606

REACTIONS (1)
  - Anaphylactic shock [Unknown]

NARRATIVE: CASE EVENT DATE: 201606
